FAERS Safety Report 23144548 (Version 1)
Quarter: 2023Q4

REPORT INFORMATION
  Report Type: Spontaneous
  Country: GB (occurrence: GB)
  Receive Date: 20231103
  Receipt Date: 20231103
  Transmission Date: 20240110
  Serious: Yes (Disabling)
  Sender: FDA-Public Use
  Company Number: GB-SUN PHARMACEUTICAL INDUSTRIES LTD-2023RR-416269

PATIENT
  Age: 91 Year
  Sex: Female
  Weight: 50 kg

DRUGS (13)
  1. CODEINE [Suspect]
     Active Substance: CODEINE
     Indication: Ill-defined disorder
     Dosage: UNK
     Route: 065
     Dates: start: 20231019
  2. ASPIRIN [Concomitant]
     Active Substance: ASPIRIN
     Indication: Ill-defined disorder
     Dosage: TAKE ONE TABLET DAILY TO HELP THIN THE BLOOD
     Route: 065
     Dates: start: 20230111
  3. ATORVASTATIN [Concomitant]
     Active Substance: ATORVASTATIN
     Indication: Ill-defined disorder
     Dosage: TAKE ONE DAILY TO LOWER CHOLESTEROL
     Route: 065
     Dates: start: 20230320
  4. CHLORAMPHENICOL [Concomitant]
     Active Substance: CHLORAMPHENICOL
     Indication: Ill-defined disorder
     Dosage: CONJUNCTIVITIS(1ST LINE): APPLY TO THE AFFECTED...
     Route: 065
     Dates: start: 20230810, end: 20230817
  5. CODEINE PHOSPHATE [Concomitant]
     Active Substance: CODEINE PHOSPHATE
     Indication: Ill-defined disorder
     Dosage: TAKE ONE OR TWO TABLETS EVERY FOUR TO SIX HOURS...
     Route: 065
     Dates: start: 20231018
  6. CHOLECALCIFEROL [Concomitant]
     Active Substance: CHOLECALCIFEROL
     Indication: Ill-defined disorder
     Dosage: TAKE TWO A DAY FOR THE TREATMENT OR PREVENTION ...
     Route: 065
     Dates: start: 20230111
  7. DOCUSATE SODIUM [Concomitant]
     Active Substance: DOCUSATE SODIUM
     Indication: Ill-defined disorder
     Dosage: TAKE TWO CAPSULES TWICE A DAY FOR RELIEF OF CON...
     Route: 065
     Dates: start: 20230111
  8. GLYCERIN [Concomitant]
     Active Substance: GLYCERIN
     Indication: Ill-defined disorder
     Dosage: GENTLY INSERT ONE INTO THE RECTUM AS NEEDED FOR...
     Route: 065
     Dates: start: 20230904, end: 20230916
  9. NITROGLYCERIN [Concomitant]
     Active Substance: NITROGLYCERIN
     Indication: Ill-defined disorder
     Dosage: SPRAY ONE OR TWO METERED DOSES UNDER THE TONGUE...
     Route: 065
     Dates: start: 20230111
  10. IBUPROFEN [Concomitant]
     Active Substance: IBUPROFEN
     Indication: Ill-defined disorder
     Dosage: APPLY TO THE AFFECTED AREA/S THREE TIMES A DAY ...
     Route: 065
     Dates: start: 20230606
  11. MACROGOL COMPOUND [Concomitant]
     Indication: Ill-defined disorder
     Dosage: DISSOLVE THE CONTENTS OF ONE SACHET IN HALF A G...
     Route: 065
     Dates: start: 20230320
  12. ACETAMINOPHEN [Concomitant]
     Active Substance: ACETAMINOPHEN
     Indication: Ill-defined disorder
     Dosage: TAKE ONE TABLET UP TO FOUR TIMES A DAY  (DOSE R...
     Route: 065
     Dates: start: 20230111
  13. ZEROBASE [Concomitant]
     Indication: Ill-defined disorder
     Dosage: APPLY TWICE A DAY AND WHEN REQUIRED AS A SKIN M...
     Route: 065
     Dates: start: 20230111

REACTIONS (1)
  - Adverse drug reaction [Recovering/Resolving]

NARRATIVE: CASE EVENT DATE: 20231019
